FAERS Safety Report 24786615 (Version 4)
Quarter: 2025Q1

REPORT INFORMATION
  Report Type: Report from Study
  Country: US (occurrence: US)
  Receive Date: 20241230
  Receipt Date: 20250222
  Transmission Date: 20250409
  Serious: Yes (Other)
  Sender: ABBVIE
  Company Number: US-ABBVIE-6065575

PATIENT
  Age: 71 Year
  Sex: Male
  Weight: 63 kg

DRUGS (4)
  1. RINVOQ [Suspect]
     Active Substance: UPADACITINIB
     Indication: Colitis ulcerative
     Route: 048
     Dates: start: 20220804, end: 20230101
  2. HYDROCODONE [Concomitant]
     Active Substance: HYDROCODONE
     Indication: Fibromyalgia
     Dates: start: 19960105
  3. DIAZEPAM [Concomitant]
     Active Substance: DIAZEPAM
     Indication: Myalgia
     Route: 048
     Dates: start: 199605
  4. METHOCARBAMOL [Concomitant]
     Active Substance: METHOCARBAMOL
     Indication: Muscle tightness
     Route: 048
     Dates: start: 20170101

REACTIONS (4)
  - Prostate cancer [Recovering/Resolving]
  - Myalgia [Unknown]
  - Bone disorder [Unknown]
  - Oesophageal operation [Recovering/Resolving]

NARRATIVE: CASE EVENT DATE: 20240101
